FAERS Safety Report 9661198 (Version 1)
Quarter: 2013Q4

REPORT INFORMATION
  Report Type: Spontaneous
  Country: PL (occurrence: PL)
  Receive Date: 20131031
  Receipt Date: 20131031
  Transmission Date: 20140711
  Serious: Yes (Life-Threatening, Hospitalization)
  Sender: FDA-Public Use
  Company Number: PL-CELGENEUS-129-21660-13103810

PATIENT
  Age: 60 Year
  Sex: Female
  Weight: 61 kg

DRUGS (1)
  1. ABRAXANE [Suspect]
     Indication: UTERINE CANCER
     Route: 041
     Dates: start: 20130823

REACTIONS (1)
  - Hypersensitivity [Recovered/Resolved]
